FAERS Safety Report 21745766 (Version 6)
Quarter: 2023Q1

REPORT INFORMATION
  Report Type: Report from Study
  Country: AR (occurrence: AR)
  Receive Date: 20221219
  Receipt Date: 20230330
  Transmission Date: 20230418
  Serious: Yes (Hospitalization)
  Sender: FDA-Public Use
  Company Number: AR-002147023-NVSC2022AR189231

PATIENT
  Age: 68 Year
  Sex: Male

DRUGS (7)
  1. COSENTYX [Suspect]
     Active Substance: SECUKINUMAB
     Indication: Psoriasis
     Dosage: 300 MG, QMO
     Route: 058
     Dates: start: 20220719, end: 202212
  2. COSENTYX [Suspect]
     Active Substance: SECUKINUMAB
     Dosage: 300 MG, QMO
     Route: 058
     Dates: start: 202212
  3. INSULIN NOS [Concomitant]
     Active Substance: INSULIN NOS
     Indication: Diabetes mellitus
     Dosage: 15 IU, QD (IN THE MORNING)
     Route: 065
  4. INSULIN NOS [Concomitant]
     Active Substance: INSULIN NOS
     Dosage: 10 IU, QD (AT NIGHT)
     Route: 065
  5. EMPAGLIFLOZIN [Concomitant]
     Active Substance: EMPAGLIFLOZIN
     Indication: Diabetes mellitus
     Dosage: 1 DOSAGE FORM, QD (IN AFTERNOON)
     Route: 065
  6. GLIMEPIRIDE [Concomitant]
     Active Substance: GLIMEPIRIDE
     Indication: Diabetes mellitus
     Dosage: 1 DOSAGE FORM, QD (AT NIGHT)
     Route: 065
  7. AEROTROP [Concomitant]
     Indication: Product used for unknown indication
     Dosage: UNK (1 PAFF IN THE AFTERNOON)
     Route: 065

REACTIONS (7)
  - Cardiac failure [Unknown]
  - Arterial occlusive disease [Recovering/Resolving]
  - Blood glucose increased [Unknown]
  - Dyspnoea [Unknown]
  - Procedural pain [Recovering/Resolving]
  - Skin depigmentation [Unknown]
  - Back pain [Recovering/Resolving]

NARRATIVE: CASE EVENT DATE: 20221201
